FAERS Safety Report 8837088 (Version 1)
Quarter: 2012Q4

REPORT INFORMATION
  Report Type: 
  Country: US (occurrence: US)
  Receive Date: 20121012
  Receipt Date: 20121012
  Transmission Date: 20130627
  Serious: Yes (Life-Threatening, Hospitalization)
  Sender: FDA-Public Use
  Company Number: US-BRISTOL-MYERS SQUIBB COMPANY-17016106

PATIENT
  Age: 46 Year
  Sex: Male

DRUGS (1)
  1. SUSTIVA [Suspect]
     Dosage: at bedtime

REACTIONS (1)
  - Convulsion [Unknown]
